FAERS Safety Report 5109527-0 (Version None)
Quarter: 2006Q3

REPORT INFORMATION
  Report Type: 
  Country: None (occurrence: None)
  Receive Date: 20060731
  Receipt Date: 20060405
  Transmission Date: 20061208
  Serious: No
  Sender: FDA-Public Use
  Company Number: 2006PV011577

PATIENT
  Age: 49 Year
  Sex: Female
  Weight: 90.7194 kg

DRUGS (4)
  1. BYETTA [Suspect]
     Indication: DIABETES MELLITUS NON-INSULIN-DEPENDENT
     Dosage: SEE IMAGE
     Route: 058
     Dates: start: 20060302, end: 20060402
  2. BYETTA [Suspect]
     Indication: DIABETES MELLITUS NON-INSULIN-DEPENDENT
     Dosage: SEE IMAGE
     Route: 058
     Dates: start: 20060403
  3. GLIPIZIDE [Concomitant]
  4. METFORMIN HCL [Concomitant]

REACTIONS (8)
  - ASTHENIA [None]
  - DECREASED APPETITE [None]
  - HEADACHE [None]
  - IMPAIRED WORK ABILITY [None]
  - NAUSEA [None]
  - SALIVARY HYPERSECRETION [None]
  - VOMITING [None]
  - WEIGHT DECREASED [None]
